FAERS Safety Report 8275232-5 (Version None)
Quarter: 2012Q2

REPORT INFORMATION
  Report Type: 
  Country: None (occurrence: None)
  Receive Date: 20120411
  Receipt Date: 20120402
  Transmission Date: 20120825
  Serious: Yes (Other)
  Sender: FDA-Public Use
  Company Number: US-FRI-1000029501

PATIENT
  Age: 63 Year
  Sex: Male

DRUGS (6)
  1. WATER PILL NOS [Concomitant]
  2. HIGH BLOOD PRESSURE MEDICATION (NOS) [Concomitant]
     Indication: HYPERTENSION
  3. VITAMIN D [Concomitant]
  4. VIIBRYD [Suspect]
     Indication: DEPRESSION
     Dosage: 10 MG
     Dates: start: 20120319, end: 20120401
  5. VIIBRYD [Suspect]
     Dosage: 20 MG
     Dates: start: 20120402
  6. ASPIRIN [Concomitant]

REACTIONS (1)
  - SUICIDAL IDEATION [None]
